FAERS Safety Report 6551486-8 (Version None)
Quarter: 2010Q1

REPORT INFORMATION
  Report Type: 
  Country: None (occurrence: None)
  Receive Date: 20100121
  Receipt Date: 20081118
  Transmission Date: 20100710
  Serious: No
  Sender: FDA-Public Use
  Company Number: 08H-163-0315211-00

PATIENT
  Age: 40 Year
  Sex: Female
  Weight: 113 kg

DRUGS (3)
  1. VANCOMYCIN HCL [Suspect]
     Indication: POST PROCEDURAL INFECTION
     Dosage: 1 GM, EVERY 12 HOURS, INTRAVENOUS
     Route: 042
     Dates: start: 20081001, end: 20081111
  2. FLUCONAZOLE [Concomitant]
  3. SEROQUEL [Concomitant]

REACTIONS (2)
  - PYREXIA [None]
  - RASH [None]
